FAERS Safety Report 23212886 (Version 2)
Quarter: 2024Q3

REPORT INFORMATION
  Report Type: Report from Study
  Country: US (occurrence: US)
  Receive Date: 20231121
  Receipt Date: 20240712
  Transmission Date: 20241017
  Serious: No
  Sender: KYOWA
  Company Number: US-KYOWAKIRIN-2023KK018510

PATIENT

DRUGS (6)
  1. BUROSUMAB [Suspect]
     Active Substance: BUROSUMAB
     Indication: Hereditary hypophosphataemic rickets
     Dosage: 20 MG, 1X/2 WEEKS
     Route: 058
     Dates: start: 20200428
  2. BUROSUMAB [Suspect]
     Active Substance: BUROSUMAB
     Dosage: 50 MG, 1X/2 WEEKS
     Route: 058
     Dates: start: 20230315
  3. BUROSUMAB [Suspect]
     Active Substance: BUROSUMAB
     Indication: Hereditary hypophosphataemic rickets
     Dosage: 30 MG, 1X/2 WEEKS
     Route: 058
     Dates: start: 20230428
  4. BUROSUMAB [Suspect]
     Active Substance: BUROSUMAB
     Dosage: 50 MG, 1X/2 WEEKS
     Route: 058
     Dates: start: 20230315
  5. BUROSUMAB [Suspect]
     Active Substance: BUROSUMAB
     Indication: Product used for unknown indication
     Dosage: UNK, 1X/2 WEEKS
     Route: 065
     Dates: start: 20200601
  6. BUROSUMAB [Suspect]
     Active Substance: BUROSUMAB
     Dosage: UNK (DOSE INCREASED)
     Route: 065

REACTIONS (2)
  - Blood calcium decreased [Unknown]
  - Therapy interrupted [Unknown]

NARRATIVE: CASE EVENT DATE: 20231116
